FAERS Safety Report 8449750-0 (Version None)
Quarter: 2012Q2

REPORT INFORMATION
  Report Type: 
  Country: None (occurrence: None)
  Receive Date: 20120613
  Receipt Date: 20120613
  Transmission Date: 20120825
  Serious: Yes (Other)
  Sender: FDA-Public Use
  Company Number: None

PATIENT
  Age: 40 Year
  Sex: Male
  Weight: 93.2 kg

DRUGS (1)
  1. NATALIZUMAB [Suspect]
     Dates: start: 20111214, end: 20111214

REACTIONS (1)
  - PRURITUS [None]
